FAERS Safety Report 5146807-7 (Version None)
Quarter: 2006Q4

REPORT INFORMATION
  Report Type: 
  Country: None (occurrence: None)
  Receive Date: 20061109
  Receipt Date: 20061106
  Transmission Date: 20070319
  Serious: Yes (Hospitalization, Other)
  Sender: FDA-Public Use
  Company Number: US-BRISTOL-MYERS SQUIBB COMPANY-13567607

PATIENT
  Age: 43 Year
  Sex: Female

DRUGS (5)
  1. CARBOPLATIN [Suspect]
     Indication: BREAST CANCER METASTATIC
     Dates: start: 20051111, end: 20060401
  2. DOCETAXEL [Suspect]
     Indication: BREAST CANCER METASTATIC
     Dates: start: 20051116, end: 20060401
  3. HERCEPTIN [Suspect]
     Indication: BREAST CANCER METASTATIC
     Dates: start: 20021005, end: 20060801
  4. ZOLEDRONIC ACID [Concomitant]
  5. LEXAPRO [Concomitant]

REACTIONS (26)
  - ANAEMIA [None]
  - BACK PAIN [None]
  - COUGH [None]
  - DUODENAL ULCER [None]
  - DYSPHAGIA [None]
  - DYSPNOEA EXERTIONAL [None]
  - EPISTAXIS [None]
  - FATIGUE [None]
  - FLUID RETENTION [None]
  - GASTRITIS [None]
  - HAEMATOCRIT DECREASED [None]
  - HAEMOGLOBIN DECREASED [None]
  - HYPOAESTHESIA [None]
  - MIGRAINE [None]
  - MUSCULAR WEAKNESS [None]
  - NAUSEA [None]
  - OESOPHAGITIS [None]
  - PARAESTHESIA [None]
  - PERICARDIAL EFFUSION [None]
  - PITTING OEDEMA [None]
  - PLEURAL EFFUSION [None]
  - PNEUMONIA [None]
  - RECURRENT CANCER [None]
  - THROMBOCYTOPENIA [None]
  - VOMITING [None]
  - WEIGHT INCREASED [None]
